FAERS Safety Report 16384157 (Version 1)
Quarter: 2019Q2

REPORT INFORMATION
  Report Type: Spontaneous
  Country: US (occurrence: US)
  Receive Date: 20190429
  Receipt Date: 20190429
  Transmission Date: 20190711
  Serious: Yes (Hospitalization)
  Sender: FDA-Public Use
  Company Number: None

PATIENT
  Age: 50 Year
  Sex: Female

DRUGS (1)
  1. TACROLIMUS CAP 1MG [Suspect]
     Active Substance: TACROLIMUS
     Indication: CONGENITAL CYSTIC KIDNEY DISEASE
     Route: 048
     Dates: start: 201509

REACTIONS (15)
  - Constipation [None]
  - Conjunctivochalasis [None]
  - Fatigue [None]
  - Decreased appetite [None]
  - Oral candidiasis [None]
  - Anaemia [None]
  - Vision blurred [None]
  - Vomiting [None]
  - Blood magnesium decreased [None]
  - Palpitations [None]
  - Blood calcium decreased [None]
  - Osteopenia [None]
  - Hypertension [None]
  - Dizziness [None]
  - Tremor [None]

NARRATIVE: CASE EVENT DATE: 20150915
